FAERS Safety Report 5981057-3 (Version None)
Quarter: 2008Q4

REPORT INFORMATION
  Report Type: 
  Country: None (occurrence: None)
  Receive Date: 20081205
  Receipt Date: 20081022
  Transmission Date: 20090506
  Serious: No
  Sender: FDA-Public Use
  Company Number: A0753012A

PATIENT
  Age: 58 Year
  Sex: Male

DRUGS (1)
  1. COMMIT NICOTINE POLACRILEX CAPPUCCINO LOZENGE, 2MG [Suspect]

REACTIONS (1)
  - ABDOMINAL DISCOMFORT [None]
